FAERS Safety Report 9820899 (Version 1)
Quarter: 2014Q1

REPORT INFORMATION
  Report Type: Spontaneous
  Country: US (occurrence: None)
  Receive Date: 20140114
  Receipt Date: 20140114
  Transmission Date: 20141002
  Serious: Yes (Disabling)
  Sender: FDA-Public Use
  Company Number: None

PATIENT
  Age: 67 Year
  Sex: Female
  Weight: 54.89 kg

DRUGS (1)
  1. ACTONEL [Suspect]
     Indication: OSTEOPOROSIS
     Dosage: TAKEN BY MOUTH
     Dates: start: 20140110

REACTIONS (6)
  - Asthenia [None]
  - Dizziness [None]
  - Dizziness [None]
  - Nausea [None]
  - Diarrhoea [None]
  - Abdominal pain upper [None]
